FAERS Safety Report 8301359-5 (Version None)
Quarter: 2012Q2

REPORT INFORMATION
  Report Type: 
  Country: None (occurrence: None)
  Receive Date: 20120420
  Receipt Date: 20120416
  Transmission Date: 20120825
  Serious: Yes (Hospitalization, Other)
  Sender: FDA-Public Use
  Company Number: US-ABBOTT-12P-163-0927049-00

PATIENT
  Sex: Male
  Weight: 90.8 kg

DRUGS (8)
  1. CRESTOR [Concomitant]
     Indication: BLOOD CHOLESTEROL INCREASED
     Dosage: STOPPED PRIOR TO GASTRIC BYPASS SURGERY
     Dates: end: 20120401
  2. ANDROGEL [Suspect]
     Dosage: 4 PUMPS DAILY
     Route: 061
  3. ENOXAPARIN SODIUM [Suspect]
     Indication: THROMBOSIS PROPHYLAXIS
  4. BENICAR [Concomitant]
     Indication: HYPERTENSION
  5. ANDROGEL [Suspect]
     Dosage: 3 PUMPS DAILY
     Route: 061
     Dates: start: 20090101
  6. ENOXAPARIN SODIUM [Suspect]
     Indication: ANTICOAGULANT THERAPY
     Dosage: 40MG/.4ML (100MG/ML), 1 IN 12 HRS
     Route: 050
     Dates: start: 20120409
  7. DEXILANT [Concomitant]
     Indication: GASTROOESOPHAGEAL REFLUX DISEASE
     Route: 048
     Dates: start: 20120416
  8. ANDROGEL [Suspect]
     Indication: BLOOD TESTOSTERONE DECREASED
     Dosage: 5 PUMPS DAILY
     Route: 061

REACTIONS (5)
  - DYSURIA [None]
  - POLYCYTHAEMIA [None]
  - WEIGHT INCREASED [None]
  - HAEMOGLOBIN INCREASED [None]
  - INCREASED TENDENCY TO BRUISE [None]
